FAERS Safety Report 6555303-1 (Version None)
Quarter: 2010Q1

REPORT INFORMATION
  Report Type: 
  Country: None (occurrence: None)
  Receive Date: 20100128
  Receipt Date: 20090413
  Transmission Date: 20100710
  Serious: No
  Sender: FDA-Public Use
  Company Number: A0778426A

PATIENT
  Age: 37 Year
  Sex: Female

DRUGS (2)
  1. WELLBUTRIN [Suspect]
     Indication: DEPRESSION
     Dosage: 150MG TWICE PER DAY
     Route: 048
     Dates: start: 19990101, end: 20000101
  2. NO CONCURRENT MEDICATION [Concomitant]

REACTIONS (3)
  - ABNORMAL SENSATION IN EYE [None]
  - EAR DISCOMFORT [None]
  - HEADACHE [None]
